FAERS Safety Report 4745381-4 (Version None)
Quarter: 2005Q3

REPORT INFORMATION
  Report Type: 
  Country: None (occurrence: None)
  Receive Date: 20050815
  Receipt Date: 20050729
  Transmission Date: 20060218
  Serious: Yes (Other)
  Sender: FDA-Public Use
  Company Number: TRP_0237_2005

PATIENT
  Age: 49 Year
  Sex: Female

DRUGS (3)
  1. RIBASPHERE [Suspect]
     Indication: HEPATITIS C
     Dosage: PO
     Route: 048
     Dates: start: 20040522
  2. PEG-INTRON [Suspect]
     Indication: HEPATITIS C
     Dosage: PO
     Route: 048
     Dates: start: 20040522
  3. LOTENSIN [Concomitant]

REACTIONS (2)
  - BLOOD POTASSIUM DECREASED [None]
  - IRRITABLE BOWEL SYNDROME [None]
